FAERS Safety Report 5270739-7 (Version None)
Quarter: 2007Q1

REPORT INFORMATION
  Report Type: 
  Country: None (occurrence: None)
  Receive Date: 20070313
  Receipt Date: 20070308
  Transmission Date: 20070707
  Serious: Yes (Other)
  Sender: FDA-Public Use
  Company Number: SPV1-2007-01175

PATIENT
  Age: 90 Year
  Sex: Female

DRUGS (2)
  1. ANAGRELIDE HCL [Suspect]
     Indication: MYELOPROLIFERATIVE DISORDER
     Dosage: 0.5 MG, 2X/DAY:BID, ORAL
     Route: 048
     Dates: start: 20070201, end: 20070201
  2. PLAVIX [Suspect]
     Indication: MYELOPROLIFERATIVE DISORDER
     Dosage: 75 MG, 1X/DAY:QD, ORAL
     Route: 048
     Dates: end: 20070201

REACTIONS (2)
  - DRUG INTERACTION [None]
  - PLATELET COUNT INCREASED [None]
